FAERS Safety Report 21506524 (Version 1)
Quarter: 2022Q4

REPORT INFORMATION
  Report Type: Spontaneous
  Country: US (occurrence: US)
  Receive Date: 20221026
  Receipt Date: 20221026
  Transmission Date: 20230113
  Serious: Yes (Other)
  Sender: FDA-Public Use
  Company Number: US-RECORDATI RARE DISEASE INC.-2022004977

PATIENT

DRUGS (1)
  1. METHAMPHETAMINE [Suspect]
     Active Substance: METHAMPHETAMINE
     Indication: Product used for unknown indication
     Dosage: UNK
     Route: 065

REACTIONS (6)
  - Encephalitis autoimmune [Unknown]
  - Condition aggravated [Unknown]
  - Drug abuse [Unknown]
  - Coma [Unknown]
  - Dizziness [Unknown]
  - Headache [Unknown]
